FAERS Safety Report 7516893-5 (Version None)
Quarter: 2011Q2

REPORT INFORMATION
  Report Type: 
  Country: None (occurrence: None)
  Receive Date: 20110526
  Receipt Date: 20110526
  Transmission Date: 20111010
  Serious: Yes (Life-Threatening, Hospitalization)
  Sender: FDA-Public Use
  Company Number: None

PATIENT
  Age: 14 Year
  Sex: Male
  Weight: 52 kg

DRUGS (1)
  1. ISOTRETINOIN [Suspect]
     Indication: ACNE CYSTIC
     Dosage: 40MG PER DAY PO
     Route: 048
     Dates: start: 20110322, end: 20110524

REACTIONS (11)
  - DEPRESSION [None]
  - FRUSTRATION [None]
  - PSYCHIATRIC SYMPTOM [None]
  - APATHY [None]
  - SOMNOLENCE [None]
  - SUICIDE ATTEMPT [None]
  - AFFECTIVE DISORDER [None]
  - VICTIM OF CRIME [None]
  - THEFT [None]
  - INCORRECT DOSE ADMINISTERED [None]
  - EDUCATIONAL PROBLEM [None]
